FAERS Safety Report 12354908 (Version 1)
Quarter: 2016Q2

REPORT INFORMATION
  Report Type: Spontaneous
  Country: US (occurrence: None)
  Receive Date: 20160510
  Receipt Date: 20160510
  Transmission Date: 20160815
  Serious: Yes (Other)
  Sender: FDA-Public Use
  Company Number: None

PATIENT
  Age: 43 Year
  Sex: Female
  Weight: 90.72 kg

DRUGS (7)
  1. SWANSONS WOMENS MULTI VITAMIN [Concomitant]
  2. HYDROCODONE [Concomitant]
     Active Substance: HYDROCODONE
  3. LEVAQUIN [Suspect]
     Active Substance: LEVOFLOXACIN
     Indication: INFECTION
     Dosage: IV + MOUTH
     Route: 042
     Dates: start: 20160415, end: 20160503
  4. NOVOLOG FLEX PEN LANSTAR [Concomitant]
  5. EFFEXOR XR [Concomitant]
     Active Substance: VENLAFAXINE HYDROCHLORIDE
  6. LISINOPRIL. [Concomitant]
     Active Substance: LISINOPRIL
  7. LANTUS SOLOSTAR FLEX PEN [Concomitant]

REACTIONS (3)
  - Pain in extremity [None]
  - Arthralgia [None]
  - Renal failure [None]

NARRATIVE: CASE EVENT DATE: 20160430
